FAERS Safety Report 8478572-X (Version None)
Quarter: 2012Q2

REPORT INFORMATION
  Report Type: 
  Country: None (occurrence: None)
  Receive Date: 20120618
  Receipt Date: 20120607
  Transmission Date: 20120825
  Serious: Yes (Other)
  Sender: FDA-Public Use
  Company Number: 2012SP032188

PATIENT
  Sex: Female

DRUGS (1)
  1. DESOGESTREL AND ETHINYL ESTRADIOL [Suspect]
     Indication: CONTRACEPTION
     Dosage: ;QD;PO
     Route: 048

REACTIONS (8)
  - VOMITING [None]
  - LIBIDO DECREASED [None]
  - ABDOMINAL PAIN [None]
  - MOOD ALTERED [None]
  - NAUSEA [None]
  - FATIGUE [None]
  - HEADACHE [None]
  - ALOPECIA [None]
